FAERS Safety Report 24555429 (Version 1)
Quarter: 2024Q4

REPORT INFORMATION
  Report Type: Spontaneous
  Country: GB (occurrence: GB)
  Receive Date: 20241028
  Receipt Date: 20241028
  Transmission Date: 20250115
  Serious: Yes (Other)
  Sender: ELI LILLY AND COMPANY
  Company Number: GB-MHRA-EMIS-2476-b7ba592c-288c-4535-8a0b-3a796fe0ad8b

PATIENT
  Age: 55 Year
  Sex: Female
  Weight: 96 kg

DRUGS (4)
  1. MOUNJARO [Suspect]
     Active Substance: TIRZEPATIDE
     Indication: Product used for unknown indication
     Dosage: 5 MG, WEEKLY (1/W)
     Route: 065
     Dates: start: 20240705
  2. NAPROXEN [Concomitant]
     Active Substance: NAPROXEN
     Indication: Product used for unknown indication
     Dosage: ONE TO BE TAKEN TWICE A DAY
     Dates: start: 20240816, end: 20240928
  3. COCODAMOL [Concomitant]
     Active Substance: ACETAMINOPHEN\CODEINE PHOSPHATE
     Indication: Product used for unknown indication
     Dosage: ONE TO BE TAKEN FOUR TIMES A DAY
     Dates: start: 20240816, end: 20240925
  4. COMIRNATY [Concomitant]
     Indication: Product used for unknown indication
     Dosage: 0.3 ML
     Route: 030
     Dates: start: 20241003, end: 20241003

REACTIONS (2)
  - Intermenstrual bleeding [Not Recovered/Not Resolved]
  - Menopausal symptoms [Unknown]
